FAERS Safety Report 14506849 (Version 2)
Quarter: 2018Q3

REPORT INFORMATION
  Report Type: Spontaneous
  Country: US (occurrence: US)
  Receive Date: 20180208
  Receipt Date: 20180726
  Transmission Date: 20181010
  Serious: No
  Sender: FDA-Public Use
  Company Number: US-BAYER-2018-025610

PATIENT
  Age: 47 Year
  Sex: Female

DRUGS (1)
  1. MIRENA [Suspect]
     Active Substance: LEVONORGESTREL
     Dosage: 20 MCG/24HR, CONT
     Route: 015
     Dates: start: 20170329, end: 20170426

REACTIONS (3)
  - Menorrhagia [None]
  - Device expulsion [None]
  - Polymenorrhoea [None]

NARRATIVE: CASE EVENT DATE: 201704
